FAERS Safety Report 8329221-2 (Version None)
Quarter: 2012Q2

REPORT INFORMATION
  Report Type: 
  Country: None (occurrence: None)
  Receive Date: 20120502
  Receipt Date: 20120430
  Transmission Date: 20120825
  Serious: No
  Sender: FDA-Public Use
  Company Number: US-TEVA-333064USA

PATIENT
  Sex: Female

DRUGS (6)
  1. COPAXONE [Suspect]
     Indication: MULTIPLE SCLEROSIS
     Route: 058
     Dates: start: 20120105
  2. PREGABALIN [Concomitant]
     Indication: NEURALGIA
     Route: 058
  3. ETODOLAC [Concomitant]
     Indication: PAIN
     Route: 048
  4. AMPYRA [Suspect]
     Indication: GAIT DISTURBANCE
     Route: 048
  5. LEVOTHYROXINE SODIUM [Concomitant]
     Indication: HYPOTHYROIDISM
  6. OMEPRAZOLE [Concomitant]
     Route: 048

REACTIONS (1)
  - MYALGIA [None]
